FAERS Safety Report 4946674-8 (Version None)
Quarter: 2006Q1

REPORT INFORMATION
  Report Type: 
  Country: None (occurrence: None)
  Receive Date: 20060317
  Receipt Date: 20050607
  Transmission Date: 20060701
  Serious: Yes (Hospitalization, Disabling)
  Sender: FDA-Public Use
  Company Number: US-MERCK-0506USA01128

PATIENT
  Age: 54 Year
  Sex: Male

DRUGS (3)
  1. VIOXX [Suspect]
     Indication: RHEUMATOID ARTHRITIS
     Route: 048
     Dates: start: 20000316, end: 20000602
  2. VIOXX [Suspect]
     Route: 048
     Dates: start: 20000901, end: 20040501
  3. VIOXX [Suspect]
     Route: 048
     Dates: start: 20040513

REACTIONS (1)
  - CEREBRAL HAEMORRHAGE [None]
